APPROVED DRUG PRODUCT: SPRAVATO
Active Ingredient: ESKETAMINE HYDROCHLORIDE
Strength: EQ 28MG BASE
Dosage Form/Route: SPRAY;NASAL
Application: N211243 | Product #001
Applicant: JANSSEN PHARMACEUTICALS INC
Approved: Mar 5, 2019 | RLD: Yes | RS: Yes | Type: RX

PATENTS:
Patent 8785500 | Expires: Mar 5, 2033
Patent 9592207 | Expires: Mar 20, 2027
Patent 11883526 | Expires: Feb 18, 2040
Patent 8785500 | Expires: Mar 5, 2033
Patent 9592207 | Expires: Mar 20, 2027
Patent 10869844 | Expires: Sep 10, 2035
Patent 10869844 | Expires: Sep 10, 2035
Patent 11173134 | Expires: Sep 10, 2035
Patent 11311500 | Expires: Sep 10, 2035
Patent 11311500 | Expires: Sep 10, 2035
Patent 11446260 | Expires: Mar 14, 2034
Patent 11173134 | Expires: Sep 10, 2035
Patent 11446260 | Expires: Mar 14, 2034
Patent 11883526 | Expires: Feb 18, 2040
Patent 11883526 | Expires: Feb 18, 2040
Patent 11311500 | Expires: Sep 10, 2035
Patent 11311500 | Expires: Sep 10, 2035
Patent 11311500 | Expires: Sep 10, 2035
Patent 11173134 | Expires: Sep 10, 2035
Patent 11446260 | Expires: Mar 14, 2034
Patent 11446260 | Expires: Mar 14, 2034
Patent 11446260 | Expires: Mar 14, 2034
Patent 10869844 | Expires: Sep 10, 2035
Patent 10869844 | Expires: Sep 10, 2035
Patent 10869844 | Expires: Sep 10, 2035

EXCLUSIVITY:
Code: I-959 | Date: Jan 17, 2028